FAERS Safety Report 4829710-9 (Version None)
Quarter: 2005Q4

REPORT INFORMATION
  Report Type: 
  Country: None (occurrence: None)
  Receive Date: 20051027
  Receipt Date: 20050112
  Transmission Date: 20060501
  Serious: Yes (Other)
  Sender: FDA-Public Use
  Company Number: HQWYE197116JUL04

PATIENT
  Age: 67 Year
  Sex: Female

DRUGS (4)
  1. PREMARIN [Suspect]
     Indication: OESTROGEN REPLACEMENT THERAPY
     Dosage: ORAL
     Route: 048
     Dates: start: 19660101
  2. ESTRACE [Suspect]
     Dates: end: 20020101
  3. ESTRADIOL [Suspect]
     Dates: end: 20020101
  4. MONOPRIL [Concomitant]

REACTIONS (1)
  - BREAST CANCER [None]
